FAERS Safety Report 5688283-1 (Version None)
Quarter: 2008Q1

REPORT INFORMATION
  Report Type: 
  Country: None (occurrence: None)
  Receive Date: 20080331
  Receipt Date: 20080320
  Transmission Date: 20080703
  Serious: Yes (Hospitalization, Other)
  Sender: FDA-Public Use
  Company Number: CA-JNJFOC-20071205070

PATIENT
  Sex: Male
  Weight: 65 kg

DRUGS (7)
  1. REMICADE [Suspect]
     Route: 042
  2. REMICADE [Suspect]
     Indication: AMYLOIDOSIS
     Dosage: 4 INFUSIONS ON UNKNOWN DATES
     Route: 042
  3. REMICADE [Suspect]
     Indication: ANKYLOSING SPONDYLITIS
     Route: 042
  4. OXYCONTIN [Concomitant]
     Indication: PAIN
     Route: 048
  5. ADALAT [Concomitant]
     Route: 048
  6. COLCHICINE [Concomitant]
     Route: 048
  7. LOSEC I.V. [Concomitant]
     Route: 048

REACTIONS (2)
  - PALPITATIONS [None]
  - RENAL FAILURE ACUTE [None]
